FAERS Safety Report 7048502-6 (Version None)
Quarter: 2010Q4

REPORT INFORMATION
  Report Type: 
  Country: None (occurrence: None)
  Receive Date: 20101007
  Receipt Date: 20100928
  Transmission Date: 20110411
  Serious: Yes (Other)
  Sender: FDA-Public Use
  Company Number: 2010SP051553

PATIENT
  Sex: Female

DRUGS (2)
  1. AVANZA (MIRTAZAPINE /01293201/) [Suspect]
     Indication: INSOMNIA
     Dosage: 15 MG;, 45 MG;
     Dates: start: 20100201, end: 20100901
  2. AVANZA (MIRTAZAPINE /01293201/) [Suspect]
     Indication: INSOMNIA
     Dosage: 15 MG;, 45 MG;
     Dates: start: 20100101

REACTIONS (2)
  - CHEST PAIN [None]
  - DRUG WITHDRAWAL SYNDROME [None]
